FAERS Safety Report 7018060-0 (Version None)
Quarter: 2010Q3

REPORT INFORMATION
  Report Type: 
  Country: None (occurrence: None)
  Receive Date: 20100928
  Receipt Date: 20100920
  Transmission Date: 20110219
  Serious: Yes (Other)
  Sender: FDA-Public Use
  Company Number: PHHY2010AT53677

PATIENT
  Age: 58 Year
  Sex: Male
  Weight: 94 kg

DRUGS (3)
  1. DIOVAN [Suspect]
     Indication: HYPERTENSION
     Dosage: 160 MG DAILY
     Route: 048
     Dates: start: 20020601
  2. DIOVAN HCT [Suspect]
     Dosage: UNK
     Route: 048
  3. NORVASC [Suspect]
     Dosage: 5 MG
     Route: 048

REACTIONS (2)
  - RENAL CELL CARCINOMA [None]
  - RENAL SURGERY [None]
